FAERS Safety Report 6525987-2 (Version None)
Quarter: 2010Q1

REPORT INFORMATION
  Report Type: 
  Country: None (occurrence: None)
  Receive Date: 20100104
  Receipt Date: 20091222
  Transmission Date: 20100710
  Serious: Yes (Life-Threatening, Hospitalization, Other)
  Sender: FDA-Public Use
  Company Number: JP-SANOFI-AVENTIS-A01200809832

PATIENT
  Age: 77 Year
  Sex: Male
  Weight: 55 kg

DRUGS (11)
  1. CLOPIDOGREL BISULFATE [Suspect]
     Dosage: UNIT DOSE: 75 MG
     Route: 048
     Dates: start: 20080715, end: 20080728
  2. CLOPIDOGREL BISULFATE [Suspect]
     Indication: ANGINA PECTORIS
     Dosage: UNIT DOSE: 75 MG
     Route: 048
     Dates: start: 20080715, end: 20080728
  3. CLOPIDOGREL BISULFATE [Suspect]
     Indication: ANTIPLATELET THERAPY
     Dosage: UNIT DOSE: 75 MG
     Route: 048
     Dates: start: 20080715, end: 20080728
  4. ASPIRIN [Concomitant]
     Indication: ANGINA PECTORIS
     Route: 048
     Dates: start: 20080715
  5. OMEPRAL [Concomitant]
     Indication: GASTRITIS
     Route: 048
     Dates: start: 20080715, end: 20080728
  6. ADALAT CC [Concomitant]
     Indication: HYPERTENSION
     Route: 048
  7. NORVASC [Concomitant]
     Indication: HYPERTENSION
     Route: 048
  8. DIOVAN [Concomitant]
     Indication: HYPERTENSION
     Route: 048
  9. LANIRAPID [Concomitant]
     Route: 048
  10. FLUITRAN [Concomitant]
     Indication: HYPERTENSION
     Route: 048
     Dates: end: 20080913
  11. WARFARIN [Concomitant]

REACTIONS (8)
  - EPISTAXIS [None]
  - LIVER DISORDER [None]
  - MOUTH HAEMORRHAGE [None]
  - OFF LABEL USE [None]
  - PANCYTOPENIA [None]
  - PULMONARY ALVEOLAR HAEMORRHAGE [None]
  - PYREXIA [None]
  - THROMBOCYTOPENIA [None]
